FAERS Safety Report 8306624-3 (Version None)
Quarter: 2012Q2

REPORT INFORMATION
  Report Type: 
  Country: None (occurrence: None)
  Receive Date: 20120420
  Receipt Date: 20120420
  Transmission Date: 20120825
  Serious: No
  Sender: FDA-Public Use
  Company Number: None

PATIENT
  Sex: Male
  Weight: 95 kg

DRUGS (3)
  1. ELOXATIN [Suspect]
     Dosage: 184 MG
  2. BEVACIZUMAB (RHUMAB VEGF) [Suspect]
     Dosage: 478 MG
  3. FLUOROURACIL [Suspect]
     Dosage: 868 MG

REACTIONS (1)
  - HYPOKALAEMIA [None]
